FAERS Safety Report 5311129-8 (Version None)
Quarter: 2007Q2

REPORT INFORMATION
  Report Type: 
  Country: None (occurrence: None)
  Receive Date: 20070430
  Receipt Date: 20070420
  Transmission Date: 20071010
  Serious: Yes (Hospitalization)
  Sender: FDA-Public Use
  Company Number: SE-BAXTER-2007BH003796

PATIENT
  Age: 57 Year
  Sex: Female
  Weight: 68 kg

DRUGS (10)
  1. EXTRANEAL [Suspect]
     Indication: RENAL FAILURE CHRONIC
     Route: 033
  2. EXTRANEAL [Suspect]
     Indication: WEGENER'S GRANULOMATOSIS
     Route: 033
  3. EXTRANEAL [Suspect]
     Route: 033
  4. EXTRANEAL [Suspect]
     Route: 033
  5. EXTRANEAL [Suspect]
     Route: 033
  6. EXTRANEAL [Suspect]
     Route: 033
  7. PHYSIONEAL 35 [Suspect]
     Indication: RENAL FAILURE CHRONIC
     Route: 033
  8. PHYSIONEAL 35 [Suspect]
     Indication: WEGENER'S GRANULOMATOSIS
     Route: 033
  9. NUTRINEAL [Suspect]
     Indication: RENAL FAILURE CHRONIC
     Route: 033
  10. NUTRINEAL [Suspect]
     Indication: WEGENER'S GRANULOMATOSIS
     Route: 033

REACTIONS (3)
  - NAUSEA [None]
  - PERITONITIS [None]
  - PYREXIA [None]
